FAERS Safety Report 14248441 (Version 1)
Quarter: 2017Q4

REPORT INFORMATION
  Report Type: Spontaneous
  Country: CN (occurrence: CN)
  Receive Date: 20171204
  Receipt Date: 20171204
  Transmission Date: 20180321
  Serious: Yes (Other)
  Sender: FDA-Public Use
  Company Number: CN-BAYER-2017-228837

PATIENT
  Age: 5 Year
  Sex: Male
  Weight: 15 kg

DRUGS (2)
  1. KOGENATE [Suspect]
     Active Substance: ANTIHEMOPHILIC FACTOR, HUMAN RECOMBINANT
     Indication: FACTOR VIII DEFICIENCY
     Dosage: 250 IU, BIW
     Route: 042
     Dates: start: 201306
  2. KOGENATE [Suspect]
     Active Substance: ANTIHEMOPHILIC FACTOR, HUMAN RECOMBINANT
     Indication: FACTOR VIII DEFICIENCY
     Dosage: 250 IU, QD, AFTER BLEEDING TREATMENT, COURSE IS 2 DAYS

REACTIONS (14)
  - Joint swelling [None]
  - Amyotrophy [None]
  - Joint swelling [None]
  - Haemarthrosis [None]
  - Haematoma [None]
  - Haemorrhage [None]
  - Haematoma [None]
  - Haematoma [None]
  - Amyotrophy [None]
  - Joint swelling [None]
  - Haemarthrosis [None]
  - Joint crepitation [None]
  - Haemorrhage [None]
  - Haematuria [None]

NARRATIVE: CASE EVENT DATE: 20160721
